FAERS Safety Report 24788322 (Version 1)
Quarter: 2024Q4

REPORT INFORMATION
  Report Type: Spontaneous
  Country: DK (occurrence: DK)
  Receive Date: 20241230
  Receipt Date: 20241230
  Transmission Date: 20250114
  Serious: Yes (Congenital Anomaly)
  Sender: JUBILANT
  Company Number: None

PATIENT
  Sex: Male

DRUGS (4)
  1. QUETIAPINE FUMARATE [Suspect]
     Active Substance: QUETIAPINE FUMARATE
     Indication: Mental disorder
     Dosage: 75 MG, ONCE PER DAY
     Route: 064
     Dates: start: 20210603
  2. SERTRALINE [Suspect]
     Active Substance: SERTRALINE HYDROCHLORIDE
     Indication: Depression
     Dosage: 200 MG, ONCE PER DAY
     Route: 064
     Dates: start: 20220323
  3. METHYLPHENIDATE [Suspect]
     Active Substance: METHYLPHENIDATE
     Indication: Attention deficit hyperactivity disorder
     Dosage: 40 MG, ONCE PER DAY (ADDITIONALLY, 5-30MG AS NECESSARY.)
     Route: 064
     Dates: start: 20191031
  4. METHYLPHENIDATE [Suspect]
     Active Substance: METHYLPHENIDATE
     Dosage: 30 MG, ONCE PER DAY (ADDITIONALLY, 5-30MG AS NECESSARY.)
     Route: 064
     Dates: start: 20191031

REACTIONS (2)
  - Low birth weight baby [Not Recovered/Not Resolved]
  - Foetal exposure during pregnancy [Recovered/Resolved]

NARRATIVE: CASE EVENT DATE: 20240101
